FAERS Safety Report 10218273 (Version 3)
Quarter: 2018Q3

REPORT INFORMATION
  Report Type: Report from Study
  Country: JP (occurrence: JP)
  Receive Date: 20140605
  Receipt Date: 20180920
  Transmission Date: 20181010
  Serious: Yes (Death, Hospitalization)
  Sender: FDA-Public Use
  Company Number: JP-ROCHE-1412479

PATIENT
  Age: 66 Year
  Weight: 42 kg

DRUGS (7)
  1. 5?FU [Concomitant]
     Active Substance: FLUOROURACIL
     Route: 040
  2. LOXONIN [Concomitant]
     Active Substance: LOXOPROFEN SODIUM
     Route: 065
     Dates: start: 20140524
  3. LEVOFOLINATE [Concomitant]
     Active Substance: LEVOLEUCOVORIN CALCIUM
     Indication: COLON CANCER
     Dosage: DOSAGE IS UNCERTAIN.?REPORTED AS : LEVOFOLINATE CALCIUM
     Route: 041
  4. CALONAL [Concomitant]
     Active Substance: ACETAMINOPHEN
     Route: 065
     Dates: start: 20140520
  5. IRINOTECAN HYDROCHLORIDE. [Concomitant]
     Active Substance: IRINOTECAN HYDROCHLORIDE
     Indication: COLON CANCER
     Dosage: DRUG REPORTED AS: IRINOTECAN HYDROCHLORIDE HYDRATE
     Route: 041
     Dates: start: 20140521, end: 20140521
  6. BEVACIZUMAB. [Suspect]
     Active Substance: BEVACIZUMAB
     Indication: COLON CANCER
     Route: 041
     Dates: start: 20140521, end: 20140521
  7. 5?FU [Concomitant]
     Active Substance: FLUOROURACIL
     Indication: COLON CANCER
     Route: 041
     Dates: start: 20140521, end: 20140521

REACTIONS (2)
  - Death [Fatal]
  - Pneumothorax [Recovered/Resolved]

NARRATIVE: CASE EVENT DATE: 20140524
